FAERS Safety Report 13045570 (Version 1)
Quarter: 2016Q4

REPORT INFORMATION
  Report Type: Spontaneous
  Country: US (occurrence: US)
  Receive Date: 20161220
  Receipt Date: 20161220
  Transmission Date: 20170207
  Serious: No
  Sender: FDA-Public Use
  Company Number: None

PATIENT
  Age: 53 Year
  Sex: Female
  Weight: 80.36 kg

DRUGS (7)
  1. MELOXICAM. [Concomitant]
     Active Substance: MELOXICAM
  2. CELEXA [Concomitant]
     Active Substance: CITALOPRAM HYDROBROMIDE
  3. PROPANOLOL [Concomitant]
     Active Substance: PROPRANOLOL HYDROCHLORIDE
  4. OMEPRAZOLE. [Concomitant]
     Active Substance: OMEPRAZOLE
  5. VITAMINS W/MINERALS [Concomitant]
  6. FLUOROURACIL TOPICAL CREAM, 5% TARO PHARMACEUTICALS INDUSTRIES, LTD [Suspect]
     Active Substance: FLUOROURACIL
     Indication: SEBORRHOEIC KERATOSIS
     Dosage: ON THE SKIN
     Dates: start: 20161128, end: 20161207
  7. MAXALT [Concomitant]
     Active Substance: RIZATRIPTAN BENZOATE

REACTIONS (5)
  - Aggression [None]
  - Crying [None]
  - Suicidal ideation [None]
  - Anger [None]
  - Depression [None]

NARRATIVE: CASE EVENT DATE: 20161206
